FAERS Safety Report 4504415-2 (Version None)
Quarter: 2004Q4

REPORT INFORMATION
  Report Type: 
  Country: None (occurrence: None)
  Receive Date: 20041117
  Receipt Date: 20041117
  Transmission Date: 20050328
  Serious: Yes (Disabling)
  Sender: FDA-Public Use
  Company Number: None

PATIENT
  Sex: Female
  Weight: 56.6996 kg

DRUGS (3)
  1. ZICAM NASAL GEL 0.5 FL OZ [Suspect]
     Indication: NASOPHARYNGITIS
     Dosage: 1 / NOSTRIL EVERY 4 HOURS NASAL
     Route: 045
     Dates: start: 20041111, end: 20041112
  2. COLD EEZE LOZENGES [Concomitant]
  3. THERAFLU LIQUID [Concomitant]

REACTIONS (1)
  - ANOSMIA [None]
